FAERS Safety Report 5307851-X (Version None)
Quarter: 2007Q2

REPORT INFORMATION
  Report Type: 
  Country: None (occurrence: None)
  Receive Date: 20070419
  Receipt Date: 20070406
  Transmission Date: 20071010
  Serious: Yes (Other)
  Sender: FDA-Public Use
  Company Number: 2007PV031057

PATIENT
  Age: 48 Year
  Sex: Female

DRUGS (7)
  1. BYETTA [Suspect]
     Indication: DIABETES MELLITUS NON-INSULIN-DEPENDENT
     Dosage: 5 MCG;BID;SC
     Route: 058
     Dates: start: 20060531, end: 20060620
  2. HUMALOG [Concomitant]
  3. AVAPRO [Concomitant]
  4. LANTUS [Concomitant]
  5. AVANDIA [Concomitant]
  6. LYRICA [Concomitant]
  7. NEXIUM [Concomitant]

REACTIONS (1)
  - CUTANEOUS VASCULITIS [None]
